FAERS Safety Report 21468735 (Version 1)
Quarter: 2022Q4

REPORT INFORMATION
  Report Type: Spontaneous
  Country: US (occurrence: None)
  Receive Date: 20221018
  Receipt Date: 20221018
  Transmission Date: 20230113
  Serious: No
  Sender: FDA-Public Use
  Company Number: 2022A345036

PATIENT
  Age: 52 Year
  Sex: Male

DRUGS (1)
  1. FARXIGA [Suspect]
     Active Substance: DAPAGLIFLOZIN PROPANEDIOL
     Indication: Blood glucose increased
     Route: 048

REACTIONS (1)
  - Spontaneous penile erection [Not Recovered/Not Resolved]

NARRATIVE: CASE EVENT DATE: 20221011
